FAERS Safety Report 17810418 (Version 1)
Quarter: 2020Q2

REPORT INFORMATION
  Report Type: Spontaneous
  Country: DE (occurrence: DE)
  Receive Date: 20200521
  Receipt Date: 20200521
  Transmission Date: 20200714
  Serious: Yes (Other)
  Sender: FDA-Public Use
  Company Number: DE-TEVA-2020-DE-1237138

PATIENT
  Age: 29 Year
  Sex: Female
  Weight: 115 kg

DRUGS (1)
  1. PRAMIPEXOL [Suspect]
     Active Substance: PRAMIPEXOLE
     Indication: RESTLESS LEGS SYNDROME
     Dosage: 0,088MG; UNIT DOSE: 0.09MG
     Route: 048
     Dates: start: 20200506, end: 20200507

REACTIONS (3)
  - Asthenia [Not Recovered/Not Resolved]
  - Diabetes mellitus inadequate control [Not Recovered/Not Resolved]
  - Hyperglycaemia [Not Recovered/Not Resolved]

NARRATIVE: CASE EVENT DATE: 20200506
